FAERS Safety Report 8279330 (Version 4)
Quarter: 2013Q4

REPORT INFORMATION
  Report Type: Spontaneous
  Country: US (occurrence: US)
  Receive Date: 20111208
  Receipt Date: 20131126
  Transmission Date: 20140711
  Serious: Yes (Hospitalization, Other)
  Sender: FDA-Public Use
  Company Number: US-BAYER-2011-074943

PATIENT
  Age: 17 Year
  Sex: Female
  Weight: 45 kg

DRUGS (9)
  1. YAZ [Suspect]
     Dosage: UNK
     Dates: start: 2008, end: 2009
  2. RONDEC DM [CARBINOXAM MAL,DEXTROMET HBR,PSEUDOEPH HCL] [Concomitant]
     Indication: UPPER RESPIRATORY TRACT INFECTION
  3. DARVOCET-N [Concomitant]
     Indication: ARTHRALGIA
     Dosage: UNK UNK, PRN
  4. OMEPRAZOLE [Concomitant]
     Indication: GASTROOESOPHAGEAL REFLUX DISEASE
     Dosage: 20 MG, QD
  5. CEPHALEXIN [Concomitant]
     Dosage: 500 MG, 10 DISPENSED
     Route: 048
  6. IBUPROFEN [Concomitant]
     Dosage: 800 MG, 20 DISPENSED
  7. HYDROCODONE W/ACETAMINOPHEN [Concomitant]
  8. DEPO-PROVERA [Concomitant]
  9. PRILOSEC [Concomitant]

REACTIONS (4)
  - Gallbladder injury [None]
  - Cholecystitis [None]
  - Pain [None]
  - Injury [None]
